FAERS Safety Report 5026931-X (Version None)
Quarter: 2006Q2

REPORT INFORMATION
  Report Type: 
  Country: None (occurrence: None)
  Receive Date: 20060609
  Receipt Date: 20060602
  Transmission Date: 20061013
  Serious: Yes (Death)
  Sender: FDA-Public Use
  Company Number: 062-C5013-06060029

PATIENT

DRUGS (1)
  1. REVLIMID [Suspect]

REACTIONS (1)
  - FEBRILE NEUTROPENIA [None]
